FAERS Safety Report 5893356-4 (Version None)
Quarter: 2008Q3

REPORT INFORMATION
  Report Type: 
  Country: None (occurrence: None)
  Receive Date: 20080922
  Receipt Date: 20080922
  Transmission Date: 20090109
  Serious: Yes (Life-Threatening, Other)
  Sender: FDA-Public Use
  Company Number: None

PATIENT
  Age: 44 Year
  Sex: Male
  Weight: 106.5953 kg

DRUGS (4)
  1. TOPIRAMATE [Suspect]
     Indication: AFFECTIVE DISORDER
     Dosage: 100 MG 2 TIMES PER DAY PO
     Route: 048
     Dates: start: 20070501, end: 20070905
  2. TOPIRAMATE [Suspect]
     Indication: WEIGHT DECREASED
     Dosage: 100 MG 2 TIMES PER DAY PO
     Route: 048
     Dates: start: 20070501, end: 20070905
  3. TOPIRAMATE [Suspect]
     Indication: AFFECTIVE DISORDER
     Dosage: 100 MG 2 TIMES PER DAY PO
     Route: 048
     Dates: start: 20080417, end: 20080919
  4. TOPIRAMATE [Suspect]
     Indication: WEIGHT DECREASED
     Dosage: 100 MG 2 TIMES PER DAY PO
     Route: 048
     Dates: start: 20080417, end: 20080919

REACTIONS (7)
  - ANGER [None]
  - ANXIETY [None]
  - DISTURBANCE IN ATTENTION [None]
  - IMPAIRED WORK ABILITY [None]
  - INSOMNIA [None]
  - MANIA [None]
  - PARANOIA [None]
